FAERS Safety Report 8016691-2 (Version None)
Quarter: 2012Q1

REPORT INFORMATION
  Report Type: 
  Country: None (occurrence: None)
  Receive Date: 20120102
  Receipt Date: 20111222
  Transmission Date: 20120608
  Serious: Yes (Hospitalization)
  Sender: FDA-Public Use
  Company Number: US-BIOGENIDEC-2011BI048658

PATIENT
  Age: 32 Year
  Sex: Female

DRUGS (1)
  1. TYSABRI [Suspect]
     Indication: MULTIPLE SCLEROSIS
     Route: 042
     Dates: start: 20100329

REACTIONS (6)
  - HEART RATE INCREASED [None]
  - CHEST PAIN [None]
  - HYPERTENSION [None]
  - FATIGUE [None]
  - LOSS OF CONSCIOUSNESS [None]
  - PAIN IN JAW [None]
